FAERS Safety Report 18937914 (Version 1)
Quarter: 2021Q1

REPORT INFORMATION
  Report Type: Spontaneous
  Country: IT (occurrence: IT)
  Receive Date: 20210224
  Receipt Date: 20210224
  Transmission Date: 20210420
  Serious: Yes (Other)
  Sender: FDA-Public Use
  Company Number: IT-PFIZER INC-2021164828

PATIENT
  Age: 51 Year
  Sex: Male

DRUGS (3)
  1. DAPAROX [PAROXETINE HYDROCHLORIDE] [Suspect]
     Active Substance: PAROXETINE HYDROCHLORIDE
     Indication: DRUG ABUSE
     Dosage: 20 DROP, FREQ:{TOTAL};
     Route: 048
     Dates: start: 20191223, end: 20191223
  2. HALCION [Suspect]
     Active Substance: TRIAZOLAM
     Indication: DRUG ABUSE
     Dosage: 1 DF, FREQ:{TOTAL};
     Route: 048
     Dates: start: 20191223, end: 20191223
  3. TAVOR (LORAZEPAM) [Suspect]
     Active Substance: LORAZEPAM
     Indication: DRUG ABUSE
     Dosage: 2 DF, FREQ:{TOTAL};
     Route: 048
     Dates: start: 20191223, end: 20191223

REACTIONS (4)
  - Chest pain [Recovering/Resolving]
  - Sopor [Recovering/Resolving]
  - Paraesthesia [Recovering/Resolving]
  - Drug abuse [Recovering/Resolving]

NARRATIVE: CASE EVENT DATE: 20191224
